FAERS Safety Report 9727456 (Version 1)
Quarter: 2013Q4

REPORT INFORMATION
  Report Type: Spontaneous
  Country: US (occurrence: US)
  Receive Date: 20131203
  Receipt Date: 20131203
  Transmission Date: 20140711
  Serious: No
  Sender: FDA-Public Use
  Company Number: US-BAYER-2013-144353

PATIENT
  Age: 58 Year
  Sex: Female
  Weight: 74 kg

DRUGS (12)
  1. CLIMARA [Suspect]
     Indication: HYSTERECTOMY
     Dosage: 0.06MG/DAY ONCE A WEEK
     Route: 062
     Dates: start: 20131107
  2. TOPROL [Concomitant]
     Indication: HYPERTENSION
     Dosage: 25 MG, ONCE
     Route: 048
     Dates: start: 201105
  3. SYNTHROID [Concomitant]
     Indication: THYROID DISORDER
     Dosage: 25 MG, ONCE
     Route: 048
     Dates: start: 201105
  4. BENADRYL [Concomitant]
     Indication: ALLERGIC SINUSITIS
     Dosage: 25 MG, ONCE
     Route: 048
  5. TYLENOL WITH CODEIN #3 [Concomitant]
     Indication: HEADACHE
     Dosage: ONE TABLET UPTO 3 TIMES PER DAY AS NEEDED
     Route: 048
     Dates: start: 20131118
  6. VITAMIN E [Concomitant]
     Indication: PROPHYLAXIS
     Dosage: 2000 MG, ONCE
     Route: 048
     Dates: start: 201105
  7. ATIVAN [Concomitant]
     Indication: PANIC ATTACK
     Dosage: 1 MG TABLET EVRY 4-8 HOURS PRN
     Route: 048
     Dates: start: 2009
  8. AMBIEN [Concomitant]
     Indication: INSOMNIA
     Dosage: 10 MG, ONCE
     Dates: start: 201105
  9. SOMA [Concomitant]
     Indication: MUSCLE RELAXANT THERAPY
     Dosage: 350 MG, PRN
     Route: 048
     Dates: start: 20131118
  10. ZETIA [Concomitant]
     Dosage: 10 MG, ONCE
     Dates: start: 201105
  11. CRESTOR [Concomitant]
     Dosage: 20 MG, ONCE
     Dates: start: 201105
  12. BABY ASPIRIN [Concomitant]
     Dosage: 81 MG, ONCE
     Route: 048
     Dates: start: 201105

REACTIONS (3)
  - Hot flush [Not Recovered/Not Resolved]
  - Product adhesion issue [Not Recovered/Not Resolved]
  - Nausea [Not Recovered/Not Resolved]
